FAERS Safety Report 7409816-0 (Version None)
Quarter: 2011Q2

REPORT INFORMATION
  Report Type: 
  Country: None (occurrence: None)
  Receive Date: 20110412
  Receipt Date: 20110408
  Transmission Date: 20111010
  Serious: Yes (Other)
  Sender: FDA-Public Use
  Company Number: GB-PFIZER INC-2011041237

PATIENT
  Age: 61 Year
  Sex: Male

DRUGS (11)
  1. SIMVASTATIN [Concomitant]
     Indication: TYPE 2 DIABETES MELLITUS
     Dosage: 40 MG, 1X/DAY (AT NIGHT)
  2. FORMOTEROL [Concomitant]
     Dosage: 2 DF, 2X/DAY
     Route: 055
  3. BECLOMETHASONE [Concomitant]
     Dosage: 2 DF, 2X/DAY
  4. CHAMPIX [Suspect]
     Indication: SMOKING CESSATION THERAPY
     Dosage: 1 MG, 2X/DAY
     Route: 048
     Dates: start: 20110201, end: 20110207
  5. RAMIPRIL [Concomitant]
     Indication: TYPE 2 DIABETES MELLITUS
     Dosage: 1.25 MG, 1X/DAY
  6. GLIPIZIDE [Concomitant]
     Dosage: 10 MG, 2X/DAY
  7. PIOGLITAZONE HYDROCHLORIDE [Concomitant]
     Dosage: 15 MG, 1X/DAY
  8. ACETYLSALICYLIC ACID [Concomitant]
     Indication: TYPE 2 DIABETES MELLITUS
     Dosage: 75 MG, 1X/DAY
  9. METFORMIN HYDROCHLORIDE [Concomitant]
     Indication: TYPE 2 DIABETES MELLITUS
     Dosage: 1 G, 2X/DAY
  10. SEREVENT [Concomitant]
  11. SALBUTAMOL [Concomitant]
     Dosage: 1-2 X 100UG AS NEEDED
     Route: 055
     Dates: start: 20110201

REACTIONS (2)
  - URTICARIA [None]
  - DERMATITIS ALLERGIC [None]
